FAERS Safety Report 23885742 (Version 1)
Quarter: 2024Q2

REPORT INFORMATION
  Report Type: Spontaneous
  Country: US (occurrence: US)
  Receive Date: 20240522
  Receipt Date: 20240522
  Transmission Date: 20240716
  Serious: Yes (Other)
  Sender: FDA-Public Use
  Company Number: US-ACELLA PHARMACEUTICALS, LLC-2024ALO00081

PATIENT
  Sex: Female

DRUGS (3)
  1. NP THYROID [Suspect]
     Active Substance: LEVOTHYROXINE\LIOTHYRONINE
     Dosage: 90 MG
     Dates: start: 202310, end: 202401
  2. NP THYROID [Suspect]
     Active Substance: LEVOTHYROXINE\LIOTHYRONINE
     Dosage: 60 MG, 1X/DAY
     Dates: start: 202401
  3. PRASTERONE [Suspect]
     Active Substance: PRASTERONE
     Dosage: UNK
     Dates: start: 2024, end: 2024

REACTIONS (8)
  - Rash [Recovering/Resolving]
  - Skin haemorrhage [Recovering/Resolving]
  - Skin exfoliation [Recovering/Resolving]
  - Papule [Recovering/Resolving]
  - Dry skin [Recovering/Resolving]
  - Scab [Recovering/Resolving]
  - Drug interaction [Recovered/Resolved]
  - Unevaluable event [Unknown]

NARRATIVE: CASE EVENT DATE: 20240101
